FAERS Safety Report 9342097 (Version 1)
Quarter: 2013Q2

REPORT INFORMATION
  Report Type: Spontaneous
  Country: US (occurrence: US)
  Receive Date: 20130611
  Receipt Date: 20130611
  Transmission Date: 20140414
  Serious: No
  Sender: FDA-Public Use
  Company Number: US-BAYER-2013-067504

PATIENT
  Age: 64 Year
  Sex: Male
  Weight: 99.77 kg

DRUGS (1)
  1. ALEVE CAPLET [Suspect]
     Indication: ANALGESIC THERAPY
     Dosage: ORAL2 DF, QD
     Route: 048

REACTIONS (2)
  - Wrong technique in drug usage process [None]
  - Incorrect drug administration duration [None]
